FAERS Safety Report 4875764-3 (Version None)
Quarter: 2006Q1

REPORT INFORMATION
  Report Type: 
  Country: None (occurrence: None)
  Receive Date: 20060104
  Receipt Date: 20051219
  Transmission Date: 20060701
  Serious: Yes (Death, Hospitalization)
  Sender: FDA-Public Use
  Company Number: GXKR2005GB02193

PATIENT

DRUGS (1)
  1. RIFAMPICIN [Suspect]

REACTIONS (3)
  - HEPATIC FAILURE [None]
  - LIVER FUNCTION TEST ABNORMAL [None]
  - LIVER TRANSPLANT [None]
